FAERS Safety Report 24390411 (Version 2)
Quarter: 2024Q4

REPORT INFORMATION
  Report Type: Report from Study
  Country: TH (occurrence: TH)
  Receive Date: 20241003
  Receipt Date: 20241110
  Transmission Date: 20250114
  Serious: Yes (Hospitalization, Other)
  Sender: ROCHE
  Company Number: TH-ROCHE-10000053296

PATIENT
  Age: 74 Year
  Sex: Male
  Weight: 77.3 kg

DRUGS (1)
  1. ALECENSA [Suspect]
     Active Substance: ALECTINIB HYDROCHLORIDE
     Indication: Non-small cell lung cancer
     Route: 065

REACTIONS (7)
  - Dyspnoea [Unknown]
  - Fatigue [Unknown]
  - Dehydration [Unknown]
  - Drug eruption [Recovered/Resolved]
  - Optic nerve disorder [Unknown]
  - Brain oedema [Unknown]
  - Hepatic failure [Unknown]
